FAERS Safety Report 21780965 (Version 2)
Quarter: 2022Q4

REPORT INFORMATION
  Report Type: Report from Study
  Country: US (occurrence: US)
  Receive Date: 20221227
  Receipt Date: 20221228
  Transmission Date: 20230112
  Serious: Yes (Other)
  Sender: FDA-Public Use
  Company Number: US-ABBVIE-4250634

PATIENT
  Sex: Male

DRUGS (2)
  1. HUMIRA [Suspect]
     Active Substance: ADALIMUMAB
     Indication: Crohn^s disease
     Dosage: CITRATE FREE/FORM STRENGTH: 40 MG
     Route: 058
     Dates: start: 20200806
  2. HUMIRA [Suspect]
     Active Substance: ADALIMUMAB
     Dosage: CITRATE FREE/FORM STRENGTH: 40 MG/STARTED HUMIRA PRIOR TO  2015 AND STOPPED HUMIRA BEFORE 2019
     Route: 058

REACTIONS (1)
  - Colon operation [Unknown]

NARRATIVE: CASE EVENT DATE: 20150101
